FAERS Safety Report 4302902-3 (Version None)
Quarter: 2004Q1

REPORT INFORMATION
  Report Type: 
  Country: None (occurrence: None)
  Receive Date: 20040223
  Receipt Date: 20040223
  Transmission Date: 20041129
  Serious: Yes (Other)
  Sender: FDA-Public Use
  Company Number: None

PATIENT
  Sex: Male

DRUGS (1)
  1. CARISOPRODOL [Suspect]
     Indication: PAIN
     Dates: start: 20021130, end: 20021231

REACTIONS (1)
  - DRUG INEFFECTIVE [None]
